FAERS Safety Report 4956269-8 (Version None)
Quarter: 2006Q1

REPORT INFORMATION
  Report Type: 
  Country: None (occurrence: None)
  Receive Date: 20060323
  Receipt Date: 20060308
  Transmission Date: 20060701
  Serious: Yes (Hospitalization)
  Sender: FDA-Public Use
  Company Number: SE200603002180

PATIENT
  Age: 85 Year
  Sex: Female

DRUGS (8)
  1. CYMBALTA [Suspect]
     Indication: DEPRESSION
     Dosage: 60 MG, DAILY (1/D), ORAL
     Route: 048
  2. ASPIRIN [Concomitant]
  3. METOPROLOL TARTRATE [Concomitant]
  4. FURIX (FUROSEMIDE) TABLET [Concomitant]
  5. DIGOXIN [Concomitant]
  6. ENALAPRIL MALEATE [Concomitant]
  7. KALIUM RETARD (POTASSIUM CHLORIDE) TABLET [Concomitant]
  8. SULFASALAZINE [Concomitant]

REACTIONS (2)
  - DIARRHOEA [None]
  - GASTROINTESTINAL INFECTION [None]
